FAERS Safety Report 7263176-7 (Version None)
Quarter: 2011Q1

REPORT INFORMATION
  Report Type: 
  Country: None (occurrence: None)
  Receive Date: 20110130
  Receipt Date: 20101012
  Transmission Date: 20110831
  Serious: No
  Sender: FDA-Public Use
  Company Number: US-ABBOTT-10P-163-0677866-00

PATIENT
  Sex: Female

DRUGS (11)
  1. HUMIRA [Suspect]
     Indication: RHEUMATOID ARTHRITIS
     Dates: start: 20100801, end: 20100921
  2. LEVOTHYROXINE SODIUM [Concomitant]
     Indication: HYPOTHYROIDISM
  3. WARFARIN [Concomitant]
     Indication: CORONARY ARTERY BYPASS
  4. ACETAMINOPHEN AND HYDROCODONE BITARTRATE [Concomitant]
     Indication: PAIN
  5. FOLIC ACID [Concomitant]
     Indication: PRODUCT USED FOR UNKNOWN INDICATION
  6. LUMIGAN EYE DROPS [Concomitant]
     Indication: GLAUCOMA
  7. CARVEDILOL [Concomitant]
     Indication: CORONARY ARTERY BYPASS
  8. THIAZIDE [Concomitant]
     Indication: DIURETIC THERAPY
  9. THIAZIDE [Concomitant]
     Indication: OEDEMA PERIPHERAL
  10. THIAZIDE [Concomitant]
  11. METHOTREXATE [Concomitant]
     Indication: RHEUMATOID ARTHRITIS

REACTIONS (1)
  - FUNGAL INFECTION [None]
